FAERS Safety Report 4962164-0 (Version None)
Quarter: 2006Q1

REPORT INFORMATION
  Report Type: 
  Country: None (occurrence: None)
  Receive Date: 20060329
  Receipt Date: 20060316
  Transmission Date: 20060701
  Serious: Yes (Hospitalization)
  Sender: FDA-Public Use
  Company Number: GXKR2006US01592

PATIENT
  Age: 57 Year
  Sex: Male

DRUGS (1)
  1. PREDNISONE [Suspect]
     Indication: POLYMYALGIA RHEUMATICA
     Dosage: 15 MG, Q8H, ORAL
     Route: 048

REACTIONS (5)
  - ATRIOVENTRICULAR BLOCK COMPLETE [None]
  - CARDIAC FAILURE CONGESTIVE [None]
  - CONDITION AGGRAVATED [None]
  - ENDOCARDITIS ENTEROCOCCAL [None]
  - PAIN IN EXTREMITY [None]
